FAERS Safety Report 4654207-9 (Version None)
Quarter: 2005Q2

REPORT INFORMATION
  Report Type: 
  Country: None (occurrence: None)
  Receive Date: 20050504
  Receipt Date: 20050421
  Transmission Date: 20051028
  Serious: Yes (Other)
  Sender: FDA-Public Use
  Company Number: 2005045468

PATIENT
  Age: 72 Year
  Sex: Male
  Weight: 98.8842 kg

DRUGS (3)
  1. NEURONTIN [Suspect]
     Indication: TREMOR
     Dosage: 300 MG (100 MG, 3 IN 1 D) ORAL
     Route: 048
  2. GLIPIZIDE [Concomitant]
  3. METFORMIN HCL [Concomitant]

REACTIONS (3)
  - PAIN IN EXTREMITY [None]
  - PERIPHERAL COLDNESS [None]
  - PROSTATE CANCER [None]
